FAERS Safety Report 6791423-4 (Version None)
Quarter: 2010Q2

REPORT INFORMATION
  Report Type: 
  Country: None (occurrence: None)
  Receive Date: 20100624
  Receipt Date: 20080709
  Transmission Date: 20101027
  Serious: No
  Sender: FDA-Public Use
  Company Number: US-PFIZER INC-2008058032

PATIENT
  Sex: Female

DRUGS (3)
  1. XALATAN [Suspect]
  2. XAL-EASE [Suspect]
  3. COMBIGAN [Concomitant]

REACTIONS (3)
  - DEVICE INEFFECTIVE [None]
  - VISUAL FIELD DEFECT [None]
  - VISUAL IMPAIRMENT [None]
